FAERS Safety Report 9775292 (Version 1)
Quarter: 2013Q4

REPORT INFORMATION
  Report Type: Spontaneous
  Country: US (occurrence: US)
  Receive Date: 20131220
  Receipt Date: 20131220
  Transmission Date: 20140711
  Serious: No
  Sender: FDA-Public Use
  Company Number: US-GALDERMA-US13003193

PATIENT
  Age: 49 Year
  Sex: Female

DRUGS (3)
  1. MIRVASO (BRIMONIDINE) TOPICAL GEL, 0.33% [Suspect]
     Indication: ROSACEA
     Dosage: 0.33%
     Route: 061
     Dates: start: 20131002
  2. SUMAXIN (SODIUM SULFACETAMIDE 10% + SULFUR%) [Suspect]
     Indication: ROSACEA
     Route: 061
     Dates: start: 20131002
  3. NORITATE (METRONIDAZOLE) 1% [Concomitant]
     Indication: ROSACEA
     Dosage: 1%
     Route: 061
     Dates: start: 20130913

REACTIONS (6)
  - Blister [Not Recovered/Not Resolved]
  - Skin swelling [Not Recovered/Not Resolved]
  - Pruritus [Not Recovered/Not Resolved]
  - Rash maculo-papular [Not Recovered/Not Resolved]
  - Condition aggravated [Not Recovered/Not Resolved]
  - Erythema [Not Recovered/Not Resolved]
